FAERS Safety Report 4887331-6 (Version None)
Quarter: 2005Q4

REPORT INFORMATION
  Report Type: 
  Country: None (occurrence: None)
  Receive Date: 20051221
  Receipt Date: 20050825
  Transmission Date: 20060501
  Serious: No
  Sender: FDA-Public Use
  Company Number: US-YAMANOUCHI-YPA20050460

PATIENT
  Age: 65 Year
  Sex: Female
  Weight: 61.2356 kg

DRUGS (8)
  1. VESICARE [Suspect]
     Indication: GALLBLADDER DISORDER
     Dosage: 5 MG QD PO
     Route: 048
     Dates: start: 20050817
  2. LIPITOR [Suspect]
     Indication: BLOOD CHOLESTEROL
     Dosage: 10 MG QD PO
     Route: 048
     Dates: start: 20040101
  3. NORVASC [Concomitant]
  4. DYAZIDE [Concomitant]
  5. NASONEX [Concomitant]
  6. PRILOSEC [Concomitant]
  7. SENIOR MULTIVITAMIN [Concomitant]
  8. CALCIUM GLUCONATE [Concomitant]

REACTIONS (2)
  - VAGINAL BURNING SENSATION [None]
  - VISION BLURRED [None]
